FAERS Safety Report 7681250-8 (Version None)
Quarter: 2011Q3

REPORT INFORMATION
  Report Type: 
  Country: None (occurrence: None)
  Receive Date: 20110812
  Receipt Date: 20110719
  Transmission Date: 20111222
  Serious: Yes (Death, Other)
  Sender: FDA-Public Use
  Company Number: PHHY2011US65742

PATIENT
  Age: 59 Year
  Sex: Female

DRUGS (5)
  1. RITUXIMAB [Concomitant]
  2. IMMUNE GLOBULIN NOS [Concomitant]
     Dates: start: 20090101
  3. OCTREOTIDE ACETATE [Suspect]
     Indication: DIARRHOEA
  4. CORTICOSTEROIDS [Concomitant]
  5. CHOLESTYRAMINE [Concomitant]

REACTIONS (8)
  - LOBAR PNEUMONIA [None]
  - RESPIRATORY FAILURE [None]
  - DIARRHOEA [None]
  - MALNUTRITION [None]
  - WEIGHT DECREASED [None]
  - DEHYDRATION [None]
  - DRUG INEFFECTIVE [None]
  - DUODENITIS [None]
